FAERS Safety Report 10281143 (Version 2)
Quarter: 2014Q3

REPORT INFORMATION
  Report Type: Report from Study
  Country: CR (occurrence: CR)
  Receive Date: 20140707
  Receipt Date: 20140707
  Transmission Date: 20150326
  Serious: Yes (Other)
  Sender: FDA-Public Use
  Company Number: PHHY2014CR075110

PATIENT
  Sex: Female
  Weight: 80 kg

DRUGS (2)
  1. GILENYA [Suspect]
     Active Substance: FINGOLIMOD HYDROCHLORIDE
     Indication: MULTIPLE SCLEROSIS
     Dosage: 0.5 MG, Q24H
     Route: 048
  2. CO-DIOVAN [Concomitant]
     Active Substance: HYDROCHLOROTHIAZIDE\VALSARTAN
     Indication: HYPERTENSION
     Dosage: HYDROCHLOROTHIAZIDE: 160 MG, VALSARTAN: 12.5 MG, Q24H
     Route: 048

REACTIONS (4)
  - Blood pressure increased [Recovered/Resolved]
  - Muscle spasms [Not Recovered/Not Resolved]
  - Papilloedema [Not Recovered/Not Resolved]
  - Vision blurred [Recovering/Resolving]
